FAERS Safety Report 15376370 (Version 1)
Quarter: 2018Q3

REPORT INFORMATION
  Report Type: Spontaneous
  Country: IT (occurrence: IT)
  Receive Date: 20180912
  Receipt Date: 20180912
  Transmission Date: 20181010
  Serious: Yes (Hospitalization)
  Sender: FDA-Public Use
  Company Number: IT-CHIESI USA INC.-IT-2018CHI000249

PATIENT
  Age: 1 Day
  Sex: Male
  Weight: .81 kg

DRUGS (2)
  1. CUROSURF [Suspect]
     Active Substance: PORACTANT ALFA
     Indication: RESPIRATORY DISTRESS
     Dosage: 200 MG/KG, SINGLE
     Route: 007
  2. CUROSURF [Suspect]
     Active Substance: PORACTANT ALFA
     Dosage: 100 MG/KG, SINGLE
     Route: 007

REACTIONS (2)
  - Pneumothorax [Recovered/Resolved]
  - Inappropriate schedule of drug administration [Recovered/Resolved]
